FAERS Safety Report 14146911 (Version 1)
Quarter: 2017Q4

REPORT INFORMATION
  Report Type: Spontaneous
  Country: US (occurrence: US)
  Receive Date: 20171031
  Receipt Date: 20171031
  Transmission Date: 20180321
  Serious: Yes (Hospitalization)
  Sender: FDA-Public Use
  Company Number: US-JNJFOC-20171032139

PATIENT

DRUGS (3)
  1. RISPERIDONE LONG-ACTING INJECTION [Suspect]
     Active Substance: RISPERIDONE
     Indication: SCHIZOPHRENIA
     Route: 065
  2. PALIPERIDONE LONG-ACTING INJECTION [Suspect]
     Active Substance: PALIPERIDONE PALMITATE
     Indication: SCHIZOPHRENIA
     Route: 065
  3. HALOPERIDOL LONG-ACTING INJECTION [Suspect]
     Active Substance: HALOPERIDOL LACTATE
     Indication: SCHIZOPHRENIA
     Route: 065

REACTIONS (1)
  - Hospitalisation [Unknown]
